FAERS Safety Report 24144509 (Version 1)
Quarter: 2024Q3

REPORT INFORMATION
  Report Type: Spontaneous
  Country: PH (occurrence: PH)
  Receive Date: 20240728
  Receipt Date: 20240728
  Transmission Date: 20241017
  Serious: Yes (Other)
  Sender: SANOFI AVENTIS
  Company Number: PH-SA-2024SA209053

PATIENT
  Age: 33 Year
  Sex: Female

DRUGS (2)
  1. DOCETAXEL [Suspect]
     Active Substance: DOCETAXEL\DOCETAXEL ANHYDROUS
     Indication: Follicular dendritic cell sarcoma
     Dosage: 100 MG/M2, QCY (DAY 8 OF A 21-DAY CYCLE)
  2. GEMCITABINE [Suspect]
     Active Substance: GEMCITABINE
     Indication: Follicular dendritic cell sarcoma
     Dosage: 900 MG/M2, QW (DAYS 1 AND 8) IN 21 DAY CYCLE

REACTIONS (3)
  - Leukopenia [Unknown]
  - Anaemia [Unknown]
  - Alopecia [Unknown]
